FAERS Safety Report 18022904 (Version 3)
Quarter: 2022Q4

REPORT INFORMATION
  Report Type: Report from Study
  Country: FR (occurrence: FR)
  Receive Date: 20200714
  Receipt Date: 20221206
  Transmission Date: 20230112
  Serious: Yes (Other)
  Sender: FDA-Public Use
  Company Number: FR-JNJFOC-20200713143

PATIENT
  Age: 64 Year
  Sex: Female

DRUGS (3)
  1. BORTEZOMIB [Suspect]
     Active Substance: BORTEZOMIB
     Indication: Plasma cell myeloma
     Dosage: UNK, Q2WEEKS
     Route: 065
     Dates: end: 20171229
  2. DEXAMETHASONE [Suspect]
     Active Substance: DEXAMETHASONE
     Indication: Plasma cell myeloma
     Dosage: UNK UNK, Q2WEEKS
     Route: 065
     Dates: end: 20171229
  3. THALIDOMIDE [Suspect]
     Active Substance: THALIDOMIDE
     Indication: Plasma cell myeloma
     Dosage: UNK UNK, Q3WEEKS
     Route: 065
     Dates: end: 20171229

REACTIONS (3)
  - Drug intolerance [Recovered/Resolved]
  - Intentional product misuse [Unknown]
  - Off label use [Unknown]
